FAERS Safety Report 4791600-8 (Version None)
Quarter: 2005Q4

REPORT INFORMATION
  Report Type: 
  Country: None (occurrence: None)
  Receive Date: 20051007
  Receipt Date: 20050531
  Transmission Date: 20060501
  Serious: No
  Sender: FDA-Public Use
  Company Number: US-BRISTOL-MYERS SQUIBB COMPANY-12986733

PATIENT
  Age: 71 Year
  Sex: Female
  Weight: 59 kg

DRUGS (3)
  1. AVAPRO [Suspect]
     Dates: start: 20040101
  2. MULTI-VITAMIN [Suspect]
  3. PREMARIN [Concomitant]

REACTIONS (1)
  - DYSGEUSIA [None]
